FAERS Safety Report 8593626-5 (Version None)
Quarter: 2012Q3

REPORT INFORMATION
  Report Type: 
  Country: None (occurrence: None)
  Receive Date: 20120814
  Receipt Date: 20120803
  Transmission Date: 20120928
  Serious: No
  Sender: FDA-Public Use
  Company Number: US-ASTRAZENECA-2012SE45689

PATIENT
  Age: 68 Year
  Sex: Female
  Weight: 74.8 kg

DRUGS (3)
  1. SYMBICORT [Suspect]
     Indication: POLYCYTHAEMIA
     Dosage: 80/4.5 MCG 2 PUFFS BID
     Route: 055
  2. METOPROLOL [Concomitant]
     Indication: HYPERTENSION
  3. ESTROGEN [Concomitant]

REACTIONS (2)
  - OFF LABEL USE [None]
  - CIRCUMSTANCE OR INFORMATION CAPABLE OF LEADING TO MEDICATION ERROR [None]
